FAERS Safety Report 4992278-0 (Version None)
Quarter: 2006Q2

REPORT INFORMATION
  Report Type: 
  Country: None (occurrence: None)
  Receive Date: 20060502
  Receipt Date: 20060422
  Transmission Date: 20061013
  Serious: Yes (Other)
  Sender: FDA-Public Use
  Company Number: 2006054472

PATIENT
  Age: 18 Year
  Sex: Male
  Weight: 81.1939 kg

DRUGS (1)
  1. NATURAL CITRUS LISTERINE (MENTHOL, METHYL SALICYCLATE, EUCALYPTOL, THY [Suspect]
     Indication: INTENTIONAL DRUG MISUSE
     Dosage: 1/4 OF BOTTLE ONCE, ORAL
     Route: 048
     Dates: start: 20060422, end: 20060422

REACTIONS (3)
  - FEELING DRUNK [None]
  - INCORRECT ROUTE OF DRUG ADMINISTRATION [None]
  - INTENTIONAL DRUG MISUSE [None]
